FAERS Safety Report 12943771 (Version 1)
Quarter: 2016Q4

REPORT INFORMATION
  Report Type: Spontaneous
  Country: US (occurrence: US)
  Receive Date: 20161115
  Receipt Date: 20161115
  Transmission Date: 20170207
  Serious: No
  Sender: FDA-Public Use
  Company Number: US-ROCHE-1640761

PATIENT
  Sex: Female

DRUGS (1)
  1. HERCEPTIN [Suspect]
     Active Substance: TRASTUZUMAB
     Indication: BREAST CANCER
     Dosage: EVERY 3 WEEKS FOR A YEAR
     Route: 041

REACTIONS (3)
  - Herpes zoster [Recovered/Resolved with Sequelae]
  - Immunodeficiency [Not Recovered/Not Resolved]
  - Eye infection [Recovered/Resolved with Sequelae]
